FAERS Safety Report 4340395-0 (Version None)
Quarter: 2004Q2

REPORT INFORMATION
  Report Type: 
  Country: None (occurrence: None)
  Receive Date: 20040414
  Receipt Date: 20040331
  Transmission Date: 20050107
  Serious: Yes (Hospitalization)
  Sender: FDA-Public Use
  Company Number: US069866

PATIENT
  Age: 68 Year
  Sex: Male

DRUGS (1)
  1. ENBREL [Suspect]
     Indication: PSORIASIS
     Dosage: 25 MG, 2 IN 1 WEEKS, SC
     Route: 058
     Dates: start: 20040211, end: 20040215

REACTIONS (6)
  - ARTHRALGIA [None]
  - CARDIAC FAILURE CONGESTIVE [None]
  - HYPERHIDROSIS [None]
  - PAIN [None]
  - PAIN IN EXTREMITY [None]
  - TACHYCARDIA [None]
